FAERS Safety Report 22043337 (Version 2)
Quarter: 2023Q4

REPORT INFORMATION
  Report Type: Spontaneous
  Country: FR (occurrence: FR)
  Receive Date: 20230228
  Receipt Date: 20231009
  Transmission Date: 20240110
  Serious: Yes (Other)
  Sender: FDA-Public Use
  Company Number: None

PATIENT
  Age: 72 Year
  Sex: Female
  Weight: 51 kg

DRUGS (4)
  1. RITUXIMAB [Suspect]
     Active Substance: RITUXIMAB
     Indication: Central nervous system lymphoma
     Route: 065
     Dates: start: 20211130
  2. METHOTREXATE [Suspect]
     Active Substance: METHOTREXATE
     Indication: Central nervous system lymphoma
     Dosage: 3 G/M2 INITIALLY THEN 2 THEN 1.5.
     Route: 065
     Dates: start: 20211120
  3. ONCOVIN [Suspect]
     Active Substance: VINCRISTINE SULFATE
     Indication: Central nervous system lymphoma
     Dosage: SOLUTION INJECTABLE
     Route: 065
     Dates: start: 20211130
  4. PROCARBAZINE HYDROCHLORIDE [Suspect]
     Active Substance: PROCARBAZINE HYDROCHLORIDE
     Indication: Central nervous system lymphoma
     Dosage: 7 DAYS TOTAL FOR 1 CURE
     Route: 048
     Dates: start: 20211130

REACTIONS (2)
  - Hepatic cytolysis [Recovered/Resolved]
  - Neutropenia [Recovered/Resolved]

NARRATIVE: CASE EVENT DATE: 20211126
